FAERS Safety Report 12893189 (Version 5)
Quarter: 2017Q2

REPORT INFORMATION
  Report Type: Report from Study
  Country: US (occurrence: US)
  Receive Date: 20161028
  Receipt Date: 20170413
  Transmission Date: 20170830
  Serious: No
  Sender: FDA-Public Use
  Company Number: PHEH2016US028126

PATIENT
  Age: 50 Year
  Sex: Male
  Weight: 81.63 kg

DRUGS (1)
  1. GILENYA [Suspect]
     Active Substance: FINGOLIMOD HYDROCHLORIDE
     Indication: MULTIPLE SCLEROSIS
     Dosage: 0.5 MG, QD
     Route: 048
     Dates: start: 20161011

REACTIONS (5)
  - Confusional state [Unknown]
  - Memory impairment [Unknown]
  - Stress [Unknown]
  - Disturbance in attention [Unknown]
  - Tremor [Unknown]

NARRATIVE: CASE EVENT DATE: 201610
